FAERS Safety Report 25818283 (Version 1)
Quarter: 2025Q3

REPORT INFORMATION
  Report Type: Spontaneous
  Country: JP (occurrence: JP)
  Receive Date: 20250918
  Receipt Date: 20250918
  Transmission Date: 20251021
  Serious: Yes (Hospitalization)
  Sender: PFIZER
  Company Number: None

PATIENT
  Age: 61 Year
  Sex: Male
  Weight: 52.6 kg

DRUGS (35)
  1. SULFASALAZINE [Suspect]
     Active Substance: SULFASALAZINE
     Indication: Colitis ulcerative
     Dosage: 3000 MG, 3X/DAY
     Route: 048
     Dates: start: 20250430, end: 20250516
  2. LIALDA [Suspect]
     Active Substance: MESALAMINE
     Indication: Colitis ulcerative
     Dosage: 2400 MG, 1X/DAY
     Route: 048
     Dates: start: 20250418, end: 20250429
  3. SOLDEM 3A [Concomitant]
     Active Substance: CARBOHYDRATES\POTASSIUM CHLORIDE\SODIUM CHLORIDE\SODIUM LACTATE
     Route: 042
     Dates: start: 20250417, end: 20250419
  4. SOLDEM 3A [Concomitant]
     Active Substance: CARBOHYDRATES\POTASSIUM CHLORIDE\SODIUM CHLORIDE\SODIUM LACTATE
     Route: 042
     Dates: start: 20250518
  5. DAIVITAMIX [Concomitant]
     Route: 042
     Dates: start: 20250418, end: 20250419
  6. DAIVITAMIX [Concomitant]
     Route: 042
     Dates: start: 20250516, end: 20250516
  7. VEEN D [Concomitant]
     Active Substance: CALCIUM CHLORIDE\DEXTROSE\POTASSIUM CHLORIDE\SODIUM ACETATE\SODIUM CHLORIDE
     Route: 042
     Dates: start: 20250417, end: 20250419
  8. FAMOTIDINE [Concomitant]
     Active Substance: FAMOTIDINE
     Route: 042
     Dates: start: 20250417, end: 20250419
  9. FAMOTIDINE [Concomitant]
     Active Substance: FAMOTIDINE
     Route: 042
     Dates: start: 20250517, end: 20250526
  10. CEFAZOLIN SODIUM [Concomitant]
     Active Substance: CEFAZOLIN SODIUM
     Route: 042
     Dates: start: 20250417, end: 20250419
  11. CEFAZOLIN SODIUM [Concomitant]
     Active Substance: CEFAZOLIN SODIUM
     Route: 042
     Dates: start: 20250515, end: 20250518
  12. SODIUM CHLORIDE [Concomitant]
     Active Substance: SODIUM CHLORIDE
     Route: 042
     Dates: start: 20250417, end: 20250419
  13. SODIUM CHLORIDE [Concomitant]
     Active Substance: SODIUM CHLORIDE
     Route: 042
     Dates: start: 20250515, end: 20250518
  14. SODIUM CHLORIDE [Concomitant]
     Active Substance: SODIUM CHLORIDE
     Route: 042
     Dates: start: 20250517, end: 20250525
  15. IRON SUCROSE [Concomitant]
     Active Substance: IRON SUCROSE
     Route: 042
     Dates: start: 20250419, end: 20250422
  16. DEXTROSE [Concomitant]
     Active Substance: DEXTROSE MONOHYDRATE
     Route: 042
     Dates: start: 20250419, end: 20250422
  17. HEPARIN SODIUM [Concomitant]
     Active Substance: HEPARIN SODIUM
     Route: 042
     Dates: start: 20250419, end: 20250422
  18. HEPARIN SODIUM [Concomitant]
     Active Substance: HEPARIN SODIUM
     Route: 042
     Dates: start: 20250517
  19. BIO-THREE [Concomitant]
     Active Substance: HERBALS
     Route: 048
     Dates: start: 20250419
  20. ACETAMINOPHEN [Concomitant]
     Active Substance: ACETAMINOPHEN
     Route: 048
     Dates: start: 20250429, end: 20250430
  21. REBAMIPIDE [Concomitant]
     Active Substance: REBAMIPIDE
     Route: 048
     Dates: start: 20250429, end: 20250430
  22. ADETPHOS KOWA [Concomitant]
     Indication: Tinnitus
     Route: 048
     Dates: start: 20250430, end: 20250515
  23. METHYLCOBALAMIN [Concomitant]
     Active Substance: METHYLCOBALAMIN
     Indication: Tinnitus
     Route: 048
     Dates: start: 20250430, end: 20250515
  24. KALLIDINOGENASE [Concomitant]
     Active Substance: KALLIDINOGENASE
     Indication: Tinnitus
     Route: 048
     Dates: start: 20250430, end: 20250515
  25. DEXTROSE\SODIUM CHLORIDE\SODIUM LACTATE [Concomitant]
     Active Substance: DEXTROSE\SODIUM CHLORIDE\SODIUM LACTATE
     Route: 042
     Dates: start: 20250515, end: 20250517
  26. SODIUM CHLORIDE [Concomitant]
     Active Substance: SODIUM CHLORIDE
     Route: 042
     Dates: start: 20250515, end: 20250527
  27. PREDNISOLONE SODIUM SUCCINATE [Concomitant]
     Active Substance: PREDNISOLONE SODIUM SUCCINATE
     Route: 042
     Dates: start: 20250517, end: 20250525
  28. HYDROXYZINE HYDROCHLORIDE [Concomitant]
     Active Substance: HYDROXYZINE HYDROCHLORIDE
     Route: 042
     Dates: start: 20250518, end: 20250518
  29. FUROSEMIDE [Concomitant]
     Active Substance: FUROSEMIDE
     Route: 042
     Dates: start: 20250518, end: 20250525
  30. K.C.L. [Concomitant]
     Route: 042
     Dates: start: 20250519, end: 20250527
  31. DAYVIGO [Concomitant]
     Active Substance: LEMBOREXANT
     Route: 048
     Dates: start: 20250518, end: 20250518
  32. CALCIUM SENNOSIDES [Concomitant]
     Active Substance: SENNOSIDES
     Route: 048
     Dates: start: 20250521, end: 20250523
  33. PREDNISOLONE [Concomitant]
     Active Substance: PREDNISOLONE
     Route: 048
     Dates: start: 20250526
  34. TOLVAPTAN [Concomitant]
     Active Substance: TOLVAPTAN
     Route: 048
     Dates: start: 20250526
  35. FAMOTIDINE [Concomitant]
     Active Substance: FAMOTIDINE
     Route: 048
     Dates: start: 20250526

REACTIONS (4)
  - Pneumonia [Recovered/Resolved]
  - Hyponatraemia [Recovered/Resolved]
  - Pyrexia [Recovered/Resolved]
  - Rash [Recovered/Resolved]

NARRATIVE: CASE EVENT DATE: 20250509
